FAERS Safety Report 4278352-5 (Version None)
Quarter: 2004Q1

REPORT INFORMATION
  Report Type: 
  Country: None (occurrence: None)
  Receive Date: 20040121
  Receipt Date: 20040121
  Transmission Date: 20041129
  Serious: Yes (Life-Threatening, Hospitalization, Disabling, Other)
  Sender: FDA-Public Use
  Company Number: None

PATIENT
  Age: 48 Year
  Sex: Female
  Weight: 127.9144 kg

DRUGS (3)
  1. PREMARIN [Suspect]
     Indication: MENOPAUSE
     Dosage: .625
     Dates: start: 19910701, end: 19930201
  2. PREMARIN [Suspect]
     Indication: MENOPAUSE
     Dosage: .625
     Dates: start: 19920201, end: 20020901
  3. PREMARIN [Suspect]
     Indication: MENOPAUSE
     Dosage: .625
     Dates: start: 20021001, end: 20021101

REACTIONS (18)
  - ABDOMINAL DISTENSION [None]
  - BALANCE DISORDER [None]
  - BLOOD PRESSURE INCREASED [None]
  - CEREBROVASCULAR ACCIDENT [None]
  - COMPRESSION FRACTURE [None]
  - DIZZINESS [None]
  - DYSPEPSIA [None]
  - EYE DISORDER [None]
  - FALL [None]
  - FATIGUE [None]
  - GALLBLADDER DISORDER [None]
  - GASTRIC DISORDER [None]
  - OEDEMA [None]
  - RETINAL DISORDER [None]
  - RIB FRACTURE [None]
  - THROMBOSIS [None]
  - VERTIGO [None]
  - WEIGHT INCREASED [None]
